FAERS Safety Report 6333298-3 (Version None)
Quarter: 2009Q3

REPORT INFORMATION
  Report Type: 
  Country: None (occurrence: None)
  Receive Date: 20090826
  Receipt Date: 20090721
  Transmission Date: 20100115
  Serious: Yes (Other)
  Sender: FDA-Public Use
  Company Number: 2007-165777-NL

PATIENT
  Age: 40 Year
  Sex: Female
  Weight: 59.1 kg

DRUGS (6)
  1. FOLLISTIM AQ (FOLLITROPIN BETA) [Suspect]
     Indication: ASSISTED FERTILISATION
     Dosage: 525 MG; QD; SC
     Route: 058
     Dates: start: 20070912, end: 20071001
  2. HEXADROL (DEXAMETHASONE) [Suspect]
     Indication: DRUG USE FOR UNKNOWN INDICATION
     Dosage: 0.75 MG; QD;
     Dates: start: 20070907, end: 20071001
  3. LUPRON [Suspect]
     Indication: INFERTILITY
     Dosage: 2.8 ML; SC
     Route: 058
     Dates: start: 20070912, end: 20071001
  4. MENOPUR [Concomitant]
  5. AZITHROMYCIN [Concomitant]
  6. PROGESTERONE [Concomitant]

REACTIONS (8)
  - ABDOMINAL PAIN [None]
  - ABDOMINAL TENDERNESS [None]
  - DYSPNOEA [None]
  - HEADACHE [None]
  - HYPERHIDROSIS [None]
  - HYPERTENSION [None]
  - NAUSEA [None]
  - OVARIAN HYPERSTIMULATION SYNDROME [None]
